FAERS Safety Report 10543753 (Version 1)
Quarter: 2014Q4

REPORT INFORMATION
  Report Type: Spontaneous
  Country: FR (occurrence: None)
  Receive Date: 20141023
  Receipt Date: 20141023
  Transmission Date: 20150529
  Serious: Yes (Hospitalization)
  Sender: FDA-Public Use
  Company Number: 7328244

PATIENT
  Age: 41 Year
  Sex: Female

DRUGS (4)
  1. EXACYL (TRANEXAMIC ACID) (TRANEXAMIC ACID) [Concomitant]
     Active Substance: TRANEXAMIC ACID
  2. LEVOTHYROX 175 (LEVOTHYROXINE SODIUM) 175 MICROGRAM, TABLET) (LEVOTHYROXINE SODIUM) [Suspect]
     Active Substance: LEVOTHYROXINE SODIUM
     Indication: PRODUCT USED FOR UNKNOWN INDICATION
     Route: 048
     Dates: start: 201405
  3. CERAZETTE (DESOGESREL) [Concomitant]
  4. TOCILIZUMAB (TOCILIZUMAB) (20 MILLIGRAM/MILLITERS) (TOCILIZUMAB) [Suspect]
     Active Substance: TOCILIZUMAB
     Dosage: 480 MG, 1 IN 1 M, INTRAVENTOUS (NOT OTHERWISE SPECIFIED)
     Route: 042
     Dates: start: 201302

REACTIONS (1)
  - Ischaemic stroke [None]

NARRATIVE: CASE EVENT DATE: 20140901
